FAERS Safety Report 4639522-7 (Version None)
Quarter: 2005Q2

REPORT INFORMATION
  Report Type: 
  Country: None (occurrence: None)
  Receive Date: 20050418
  Receipt Date: 20050404
  Transmission Date: 20051028
  Serious: Yes (Hospitalization)
  Sender: FDA-Public Use
  Company Number: 2005056495

PATIENT
  Age: 65 Year
  Sex: Female
  Weight: 101 kg

DRUGS (9)
  1. EPIRUBICIN [Suspect]
     Indication: BREAST CANCER
     Dosage: SEE IMAGE
     Dates: start: 20050114, end: 20050114
  2. EPIRUBICIN [Suspect]
     Indication: BREAST CANCER
     Dosage: SEE IMAGE
     Dates: start: 20050121, end: 20050121
  3. FLUOROURACIL [Suspect]
     Indication: BREAST CANCER
     Dosage: SEE IMAGE
     Dates: start: 20050114, end: 20050114
  4. FLUOROURACIL [Suspect]
     Indication: BREAST CANCER
     Dosage: SEE IMAGE
     Dates: start: 20050121, end: 20050121
  5. CYCLOPHOSPHAMIDE [Suspect]
     Indication: BREAST CANCER
     Dosage: 150 MG
     Dates: start: 20050114
  6. METOPROLOL TARTRATE [Concomitant]
  7. MOCLOBEMIDE (MOCLOBEMIDE) [Concomitant]
  8. ENALAPRIL MALEATE [Concomitant]
  9. AMITRIPTYLINE HCL [Concomitant]

REACTIONS (5)
  - AFFECT LABILITY [None]
  - HYPERVENTILATION [None]
  - NAUSEA [None]
  - PERICARDIAL EFFUSION [None]
  - TACHYPNOEA [None]
